FAERS Safety Report 6397913-0 (Version None)
Quarter: 2009Q4

REPORT INFORMATION
  Report Type: 
  Country: None (occurrence: None)
  Receive Date: 20091006
  Receipt Date: 20090923
  Transmission Date: 20100525
  Serious: Yes (Hospitalization)
  Sender: FDA-Public Use
  Company Number: 2009SP002395

PATIENT
  Age: 84 Year
  Sex: Female
  Weight: 54.4 kg

DRUGS (9)
  1. BROVANA [Suspect]
     Indication: CHRONIC OBSTRUCTIVE PULMONARY DISEASE
     Dosage: 15 UG/2ML; BID; INHALATION
     Route: 055
     Dates: start: 20090901, end: 20090922
  2. BROVANA [Suspect]
     Indication: EMPHYSEMA
     Dosage: 15 UG/2ML; BID; INHALATION
     Route: 055
     Dates: start: 20090901, end: 20090922
  3. BROVANA [Suspect]
     Indication: CHRONIC OBSTRUCTIVE PULMONARY DISEASE
     Dosage: 15 UG/2ML; BID; INHALATION
     Route: 055
     Dates: start: 20080101
  4. BROVANA [Suspect]
     Indication: EMPHYSEMA
     Dosage: 15 UG/2ML; BID; INHALATION
     Route: 055
     Dates: start: 20080101
  5. SPIRIVA [Concomitant]
  6. SINGULAIR [Concomitant]
  7. ATROVENT [Concomitant]
  8. VITAMINS [Concomitant]
  9. XOPENEX [Concomitant]

REACTIONS (3)
  - CHRONIC OBSTRUCTIVE PULMONARY DISEASE [None]
  - DRUG EFFECT DECREASED [None]
  - INFECTION [None]
